FAERS Safety Report 11247604 (Version 2)
Quarter: 2015Q3

REPORT INFORMATION
  Report Type: Report from Study
  Country: AU (occurrence: AU)
  Receive Date: 20150708
  Receipt Date: 20150723
  Transmission Date: 20151125
  Serious: Yes (Hospitalization, Disabling)
  Sender: FDA-Public Use
  Company Number: AU-ABBVIE-15P-008-1419197-00

PATIENT
  Age: 74 Year
  Sex: Female

DRUGS (4)
  1. DUODOPA [Suspect]
     Active Substance: CARBIDOPA\LEVODOPA
     Dosage: CONTINUOUS RATE: 1.7ML/HR: 16 HOURS PER DAY
     Route: 050
  2. DUODOPA [Suspect]
     Active Substance: CARBIDOPA\LEVODOPA
     Indication: PRODUCT USED FOR UNKNOWN INDICATION
     Dosage: CRD:  2.8ML; MD: 13ML
     Route: 050
     Dates: end: 20150627
  3. DUODOPA [Suspect]
     Active Substance: CARBIDOPA\LEVODOPA
     Dosage: CRD: 2.5ML; MD: 10ML
     Route: 050
     Dates: start: 20150627
  4. DUODOPA [Suspect]
     Active Substance: CARBIDOPA\LEVODOPA
     Dosage: CONTINUOUS RATE: 1.9ML/HR, EXTRA DOSE OF 2 ML: 16 H/DAY
     Route: 050

REACTIONS (4)
  - Fall [Unknown]
  - Dyskinesia [Recovering/Resolving]
  - Device dislocation [Unknown]
  - Bradykinesia [Unknown]

NARRATIVE: CASE EVENT DATE: 20150623
